FAERS Safety Report 8417198-0 (Version None)
Quarter: 2012Q2

REPORT INFORMATION
  Report Type: 
  Country: None (occurrence: None)
  Receive Date: 20120606
  Receipt Date: 20120531
  Transmission Date: 20120825
  Serious: Yes (Other)
  Sender: FDA-Public Use
  Company Number: BR-ABBOTT-12P-020-0941584-00

PATIENT
  Sex: Female
  Weight: 65 kg

DRUGS (4)
  1. DEPAKENE [Suspect]
     Indication: CONVULSION
     Dosage: 2 TABLETS PER DAY
     Route: 048
  2. DEPAKOTE [Suspect]
     Indication: TRAUMATIC DELIVERY
  3. DEPAKENE [Suspect]
     Indication: TRAUMATIC DELIVERY
  4. DEPAKOTE [Suspect]
     Indication: CONVULSION
     Dosage: 2 TABLETS PER DAY
     Route: 048
     Dates: end: 20090101

REACTIONS (12)
  - MOBILITY DECREASED [None]
  - ALOPECIA [None]
  - TREMOR [None]
  - MEMORY IMPAIRMENT [None]
  - DAYDREAMING [None]
  - FIBROMYALGIA [None]
  - WEIGHT INCREASED [None]
  - INTERVERTEBRAL DISC PROTRUSION [None]
  - BACK PAIN [None]
  - SOMNOLENCE [None]
  - AGITATION [None]
  - WEIGHT DECREASED [None]
